FAERS Safety Report 7771616-X (Version None)
Quarter: 2011Q3

REPORT INFORMATION
  Report Type: 
  Country: None (occurrence: None)
  Receive Date: 20110922
  Receipt Date: 20110107
  Transmission Date: 20111222
  Serious: No
  Sender: FDA-Public Use
  Company Number: US-ASTRAZENECA-2011SE01640

PATIENT
  Age: 13 Year
  Sex: Male

DRUGS (4)
  1. SEROQUEL XR [Suspect]
     Indication: PANIC DISORDER
     Route: 048
  2. ZOLOFT [Concomitant]
  3. ABILIFY [Concomitant]
  4. SEROQUEL XR [Suspect]
     Indication: OBSESSIVE-COMPULSIVE DISORDER
     Route: 048

REACTIONS (3)
  - PHARYNGEAL OEDEMA [None]
  - ERYTHEMA [None]
  - OEDEMA PERIPHERAL [None]
